FAERS Safety Report 8922782 (Version 6)
Quarter: 2014Q4

REPORT INFORMATION
  Report Type: Spontaneous
  Country: US (occurrence: None)
  Receive Date: 20121115
  Receipt Date: 20141124
  Transmission Date: 20150529
  Serious: Yes (Hospitalization, Other)
  Sender: FDA-Public Use
  Company Number: JPI-P-026051

PATIENT
  Age: 40 Year
  Sex: Female
  Weight: 105 kg

DRUGS (8)
  1. SPIRONOLACTONE (SPIRONOLACTONE) [Concomitant]
     Active Substance: SPIRONOLACTONE
  2. XYREM [Suspect]
     Active Substance: SODIUM OXYBATE
     Indication: NARCOLEPSY
     Dosage: 4.5 GM (2.25 GM, 2 IN 1 D), ORAL
     Route: 048
     Dates: start: 200309
  3. METFORMIN [Concomitant]
     Active Substance: METFORMIN HYDROCHLORIDE
  4. XYREM [Suspect]
     Active Substance: SODIUM OXYBATE
     Indication: SOMNOLENCE
     Dosage: 4.5 GM (2.25 GM, 2 IN 1 D), ORAL
     Route: 048
     Dates: start: 200309
  5. DULOXETINE HYDROCHLORIDE (DULOXETINE HYDROCHLORIDE) [Concomitant]
     Active Substance: DULOXETINE HYDROCHLORIDE
  6. CILEST (ETHINYLESTRADIOL, NORGESTIMATE) [Concomitant]
  7. PREGABALIN (PREGABALIN) [Concomitant]
     Active Substance: PREGABALIN
  8. TOPIRAMATE (TOPIRAMATE) [Concomitant]
     Active Substance: TOPIRAMATE

REACTIONS (15)
  - Peripheral swelling [None]
  - Hallucination [None]
  - Delusion [None]
  - Insomnia [None]
  - Diarrhoea [None]
  - Skin disorder [None]
  - Acute promyelocytic leukaemia [None]
  - Faecal incontinence [None]
  - Stress [None]
  - Local swelling [None]
  - Fibromyalgia [None]
  - Malaise [None]
  - Unevaluable event [None]
  - Depression [None]
  - Dizziness [None]

NARRATIVE: CASE EVENT DATE: 20121011
